FAERS Safety Report 7325732-7 (Version None)
Quarter: 2011Q1

REPORT INFORMATION
  Report Type: 
  Country: None (occurrence: None)
  Receive Date: 20110302
  Receipt Date: 20101101
  Transmission Date: 20110831
  Serious: No
  Sender: FDA-Public Use
  Company Number: US-BAYER-201023394BCC

PATIENT
  Sex: Female
  Weight: 62.273 kg

DRUGS (4)
  1. ONE A DAY MENOPAUSE [Suspect]
     Indication: VITAMIN SUPPLEMENTATION
     Dosage: UNK
     Dates: start: 20101026
  2. IBUPROFEN [Concomitant]
  3. UNCODEABLE ^UNCLASSIFIABLE^ [Concomitant]
  4. ALEVE [Suspect]
     Indication: ARTHRITIS
     Route: 048

REACTIONS (2)
  - POOR QUALITY SLEEP [None]
  - DIZZINESS [None]
